FAERS Safety Report 5521416-6 (Version None)
Quarter: 2007Q4

REPORT INFORMATION
  Report Type: 
  Country: None (occurrence: None)
  Receive Date: 20071119
  Receipt Date: 20071107
  Transmission Date: 20080405
  Serious: Yes (Death, Other)
  Sender: FDA-Public Use
  Company Number: US-PFIZER INC-2007077935

PATIENT
  Sex: Male
  Weight: 84.1 kg

DRUGS (9)
  1. CHANTIX [Suspect]
     Indication: SMOKING CESSATION THERAPY
  2. AVALIDE [Concomitant]
  3. PLAVIX [Concomitant]
  4. VYTORIN [Concomitant]
  5. ACETYLSALICYLIC ACID SRT [Concomitant]
  6. COREG [Concomitant]
  7. NITROGLYCERIN [Concomitant]
  8. METAGLIP [Concomitant]
  9. AVAPRO [Concomitant]

REACTIONS (2)
  - DEATH [None]
  - DYSPNOEA [None]
